FAERS Safety Report 5147713-4 (Version None)
Quarter: 2006Q4

REPORT INFORMATION
  Report Type: 
  Country: None (occurrence: None)
  Receive Date: 20060915
  Receipt Date: 20060728
  Transmission Date: 20070319
  Serious: No
  Sender: FDA-Public Use
  Company Number: 2006RL000278

PATIENT
  Age: 76 Year
  Sex: Female
  Weight: 68.0396 kg

DRUGS (11)
  1. OMACOR [Suspect]
     Indication: HYPERTRIGLYCERIDAEMIA
     Dosage: SEE IMAGE
     Route: 048
     Dates: start: 20051019, end: 20060301
  2. OMACOR [Suspect]
     Indication: HYPERTRIGLYCERIDAEMIA
     Dosage: SEE IMAGE
     Route: 048
     Dates: start: 20060301, end: 20060501
  3. OMACOR [Suspect]
     Indication: HYPERTRIGLYCERIDAEMIA
     Dosage: SEE IMAGE
     Route: 048
     Dates: start: 20060501, end: 20060801
  4. OMACOR [Suspect]
     Indication: HYPERTRIGLYCERIDAEMIA
     Dosage: SEE IMAGE
     Route: 048
     Dates: start: 20060801
  5. ATENOLOL [Concomitant]
  6. HYDROCHLOROTHIAZIDE [Concomitant]
  7. LEVOXYL [Concomitant]
  8. NIACIN [Concomitant]
  9. NITROGLYCERIN [Concomitant]
  10. MONOPRIL [Concomitant]
  11. HYDROXYZINE HYDROCHLORIDE [Concomitant]

REACTIONS (11)
  - ABDOMINAL DISTENSION [None]
  - BRONCHITIS [None]
  - CONDITION AGGRAVATED [None]
  - CONSTIPATION [None]
  - COUGH [None]
  - DYSPHONIA [None]
  - FAECES HARD [None]
  - LYMPHADENOPATHY [None]
  - PHARYNGOLARYNGEAL PAIN [None]
  - SPUTUM DISCOLOURED [None]
  - WEIGHT INCREASED [None]
